FAERS Safety Report 9464252 (Version 1)
Quarter: 2013Q3

REPORT INFORMATION
  Report Type: Spontaneous
  Country: FR (occurrence: FR)
  Receive Date: 20130819
  Receipt Date: 20130819
  Transmission Date: 20140515
  Serious: Yes (Other)
  Sender: FDA-Public Use
  Company Number: FR-JNJFOC-20130804609

PATIENT
  Age: 49 Year
  Sex: Male

DRUGS (6)
  1. IBUPROFEN [Suspect]
     Route: 065
  2. IBUPROFEN [Suspect]
     Indication: INFLUENZA
     Route: 065
     Dates: start: 201208, end: 201208
  3. PIVALONE [Suspect]
     Indication: INFLUENZA
     Route: 045
     Dates: start: 201208, end: 201208
  4. HELICIDINE [Suspect]
     Indication: INFLUENZA
     Route: 065
     Dates: start: 201208, end: 201208
  5. BECLOMETHASONE SPRAY [Suspect]
     Indication: INFLUENZA
     Route: 065
     Dates: start: 201208, end: 201208
  6. TUSSIDANE [Suspect]
     Indication: INFLUENZA
     Route: 065
     Dates: start: 201208, end: 201208

REACTIONS (3)
  - Dermatitis bullous [Unknown]
  - Purpura [Recovered/Resolved]
  - Oedema peripheral [Recovered/Resolved]
